FAERS Safety Report 5144630-0 (Version None)
Quarter: 2006Q4

REPORT INFORMATION
  Report Type: 
  Country: None (occurrence: None)
  Receive Date: 20061031
  Receipt Date: 20061017
  Transmission Date: 20070319
  Serious: Yes (Hospitalization)
  Sender: FDA-Public Use
  Company Number: 2006JP004139

PATIENT
  Age: 34 Year

DRUGS (1)
  1. VESICARE [Suspect]
     Indication: HYPERTONIC BLADDER
     Dosage: ORAL
     Route: 048

REACTIONS (3)
  - NEUTROPHIL COUNT INCREASED [None]
  - OEDEMA [None]
  - WHITE BLOOD CELL COUNT INCREASED [None]
